FAERS Safety Report 12068982 (Version 3)
Quarter: 2016Q1

REPORT INFORMATION
  Report Type: Report from Study
  Country: DE (occurrence: DE)
  Receive Date: 20160211
  Receipt Date: 20160318
  Transmission Date: 20160526
  Serious: Yes (Hospitalization)
  Sender: FDA-Public Use
  Company Number: DE-ROCHE-1708042

PATIENT
  Age: 0 Day
  Sex: Female
  Weight: 68.7 kg

DRUGS (11)
  1. GDC-0199 (BCL-2 SELECTIVE INHIBITOR) [Suspect]
     Active Substance: VENETOCLAX
     Indication: CHRONIC LYMPHOCYTIC LEUKAEMIA
     Dosage: ON 02/FEB/2016, SHE RECEIVED HER MOST RECENT DOSE OF VENETOCLAX PRIOR TO ONSET OF THE EVENT.
     Route: 048
     Dates: start: 20151130, end: 20160307
  2. LENOGRASTIM [Concomitant]
     Active Substance: LENOGRASTIM
     Dosage: TOTAL DAILY DOSE: 34 [ILLEGIBLE].
     Route: 058
     Dates: start: 20160124, end: 20160202
  3. FERRO SANOL [Concomitant]
     Active Substance: FERROUS GLYCINE SULFATE
     Route: 048
     Dates: start: 201207
  4. ALLOPURINOL. [Concomitant]
     Active Substance: ALLOPURINOL
     Route: 048
     Dates: start: 20151105
  5. BENDAMUSTINE [Suspect]
     Active Substance: BENDAMUSTINE
     Indication: CHRONIC LYMPHOCYTIC LEUKAEMIA
     Dosage: ON 16/OCT/2015, SHE RECEIVED HER FINAL DOSE OF BENDAMUSTINE.
     Route: 042
     Dates: start: 20151015, end: 20151016
  6. PANTOPRAZOLE [Concomitant]
     Active Substance: PANTOPRAZOLE SODIUM
     Route: 065
     Dates: start: 201207
  7. LEVOTHYROXINE. [Concomitant]
     Active Substance: LEVOTHYROXINE
     Route: 048
     Dates: start: 200507
  8. PROPRANOLOL [Concomitant]
     Active Substance: PROPRANOLOL\PROPRANOLOL HYDROCHLORIDE
     Route: 048
     Dates: start: 20160125
  9. OBINUTUZUMAB [Suspect]
     Active Substance: OBINUTUZUMAB
     Indication: CHRONIC LYMPHOCYTIC LEUKAEMIA
     Dosage: ON 02/FEB/2016, SHE RECEIVED HER MOST RECENT DOSE OF OBINUTUZUMAB PRIOR TO ONSET OF THE EVENT.
     Route: 042
     Dates: start: 20151105, end: 20160301
  10. PROPRANOLOL [Concomitant]
     Active Substance: PROPRANOLOL\PROPRANOLOL HYDROCHLORIDE
     Route: 065
     Dates: start: 201207
  11. IRON (II) GLYCINE SULFATE [Concomitant]
     Route: 065
     Dates: start: 201207

REACTIONS (1)
  - Osteoporosis [Not Recovered/Not Resolved]

NARRATIVE: CASE EVENT DATE: 20160128
